FAERS Safety Report 20752306 (Version 1)
Quarter: 2022Q2

REPORT INFORMATION
  Report Type: Spontaneous
  Country: US (occurrence: US)
  Receive Date: 20220426
  Receipt Date: 20220426
  Transmission Date: 20220721
  Serious: Yes (Other)
  Sender: FDA-Public Use
  Company Number: US-009507513-2204USA007785

PATIENT
  Sex: Female

DRUGS (3)
  1. KEYTRUDA [Suspect]
     Active Substance: PEMBROLIZUMAB
     Indication: Non-small cell lung cancer
     Dosage: EVERY 3 WEEKS
     Route: 042
     Dates: start: 20190328, end: 20211020
  2. CARBOPLATIN [Suspect]
     Active Substance: CARBOPLATIN
     Indication: Non-small cell lung cancer
     Dosage: 3 INFUSIONS (3 TIMES) EVERY 3 WEEKS
     Dates: start: 2020, end: 202007
  3. PACLITAXEL [Suspect]
     Active Substance: PACLITAXEL
     Indication: Non-small cell lung cancer
     Dosage: 3 INFUSIONS (3 TIMES) EVERY 3 WEEKS
     Dates: start: 2020, end: 202007

REACTIONS (3)
  - Non-small cell lung cancer recurrent [Recovered/Resolved]
  - Illness [Unknown]
  - Nephropathy toxic [Recovered/Resolved]

NARRATIVE: CASE EVENT DATE: 20200101
